FAERS Safety Report 20233179 (Version 5)
Quarter: 2022Q1

REPORT INFORMATION
  Report Type: Report from Study
  Country: JP (occurrence: JP)
  Receive Date: 20211227
  Receipt Date: 20220210
  Transmission Date: 20220423
  Serious: Yes (Hospitalization, Other)
  Sender: FDA-Public Use
  Company Number: JP-BRISTOL-MYERS SQUIBB COMPANY-BMS-2021-136130

PATIENT
  Age: 67 Year
  Sex: Male
  Weight: 71 kg

DRUGS (16)
  1. IPILIMUMAB [Suspect]
     Active Substance: IPILIMUMAB
     Indication: Non-small cell lung cancer recurrent
     Dosage: 70.4 MILLIGRAM, ONE TIME DOSE
     Route: 041
     Dates: start: 20210413, end: 20210413
  2. IPILIMUMAB [Suspect]
     Active Substance: IPILIMUMAB
     Dosage: 70 MILLIGRAM, ONE TIME DOSE
     Route: 041
     Dates: start: 20210526, end: 20210526
  3. IPILIMUMAB [Suspect]
     Active Substance: IPILIMUMAB
     Dosage: 70 MILLIGRAM, ONE TIME DOSE
     Route: 041
     Dates: start: 20210707, end: 20210707
  4. IPILIMUMAB [Suspect]
     Active Substance: IPILIMUMAB
     Dosage: 66.5 MILLIGRAM, ONE TIME DOSE
     Route: 041
     Dates: start: 20210818, end: 20210818
  5. IPILIMUMAB [Suspect]
     Active Substance: IPILIMUMAB
     Dosage: 66.5 MILLIGRAM, ONE TIME DOSE
     Route: 041
     Dates: start: 20210929, end: 20210929
  6. NIVOLUMAB [Suspect]
     Active Substance: NIVOLUMAB
     Indication: Non-small cell lung cancer recurrent
     Dosage: 360 MILLIGRAM, ONE TIME DOSE
     Route: 041
     Dates: start: 20210413, end: 20210413
  7. NIVOLUMAB [Suspect]
     Active Substance: NIVOLUMAB
     Dosage: 360 MILLIGRAM, ONE TIME DOSE
     Route: 041
     Dates: start: 20210506, end: 20210506
  8. NIVOLUMAB [Suspect]
     Active Substance: NIVOLUMAB
     Dosage: 360 MILLIGRAM, ONE TIME DOSE
     Route: 041
     Dates: start: 20210526, end: 20210526
  9. NIVOLUMAB [Suspect]
     Active Substance: NIVOLUMAB
     Dosage: 360 MILLIGRAM, ONE TIME DOSE
     Route: 041
     Dates: start: 20210616, end: 20210616
  10. NIVOLUMAB [Suspect]
     Active Substance: NIVOLUMAB
     Dosage: 360 MILLIGRAM, ONE TIME DOSE
     Route: 041
     Dates: start: 20210707, end: 20210707
  11. NIVOLUMAB [Suspect]
     Active Substance: NIVOLUMAB
     Dosage: 360 MILLIGRAM, ONE TIME DOSE
     Route: 041
     Dates: start: 20210728, end: 20210728
  12. NIVOLUMAB [Suspect]
     Active Substance: NIVOLUMAB
     Dosage: 360 MILLIGRAM, ONE TIME DOSE
     Route: 041
     Dates: start: 20210818, end: 20210818
  13. NIVOLUMAB [Suspect]
     Active Substance: NIVOLUMAB
     Dosage: 360 MILLIGRAM, ONE TIME DOSE
     Route: 041
     Dates: start: 20210908, end: 20210908
  14. NIVOLUMAB [Suspect]
     Active Substance: NIVOLUMAB
     Dosage: 360 MILLIGRAM, ONE TIME DOSE
     Route: 041
     Dates: start: 20210929, end: 20210929
  15. CARBOPLATIN [Suspect]
     Active Substance: CARBOPLATIN
     Indication: Non-small cell lung cancer recurrent
     Dosage: UNK
     Route: 065
     Dates: start: 20210413, end: 20210506
  16. PEMETREXED [Suspect]
     Active Substance: PEMETREXED
     Indication: Non-small cell lung cancer recurrent
     Dosage: UNK
     Route: 065
     Dates: start: 20210413, end: 20210506

REACTIONS (1)
  - Interstitial lung disease [Recovering/Resolving]

NARRATIVE: CASE EVENT DATE: 20211020
